FAERS Safety Report 7557208-6 (Version None)
Quarter: 2011Q2

REPORT INFORMATION
  Report Type: 
  Country: None (occurrence: None)
  Receive Date: 20110620
  Receipt Date: 20100913
  Transmission Date: 20111010
  Serious: No
  Sender: FDA-Public Use
  Company Number: US-MYLANLABS-2010S1014989

PATIENT
  Age: 79 Year
  Sex: Male

DRUGS (3)
  1. PERFOROMIST [Suspect]
     Indication: CHRONIC OBSTRUCTIVE PULMONARY DISEASE
     Route: 055
     Dates: start: 20080601, end: 20100816
  2. DUONEB [Concomitant]
  3. PERFOROMIST [Suspect]
     Route: 055
     Dates: start: 20100819

REACTIONS (1)
  - DYSPNOEA [None]
